FAERS Safety Report 19233760 (Version 7)
Quarter: 2022Q2

REPORT INFORMATION
  Report Type: Report from Study
  Country: US (occurrence: US)
  Receive Date: 20210507
  Receipt Date: 20220603
  Transmission Date: 20220721
  Serious: Yes (Hospitalization, Other)
  Sender: FDA-Public Use
  Company Number: US-TAKEDA-2020TUS055984

PATIENT
  Age: 9 Year
  Sex: Male
  Weight: 28 kg

DRUGS (20)
  1. TEDUGLUTIDE [Suspect]
     Active Substance: TEDUGLUTIDE
     Indication: Short-bowel syndrome
     Dosage: 1.355 MILLIGRAM, QD
     Route: 058
     Dates: start: 20201014
  2. TEDUGLUTIDE [Suspect]
     Active Substance: TEDUGLUTIDE
     Indication: Short-bowel syndrome
     Dosage: 1.355 MILLIGRAM, QD
     Route: 058
     Dates: start: 20201014
  3. TEDUGLUTIDE [Suspect]
     Active Substance: TEDUGLUTIDE
     Indication: Short-bowel syndrome
     Dosage: 1.355 MILLIGRAM, QD
     Route: 058
     Dates: start: 20201014
  4. TEDUGLUTIDE [Suspect]
     Active Substance: TEDUGLUTIDE
     Indication: Short-bowel syndrome
     Dosage: 1.355 MILLIGRAM, QD
     Route: 058
     Dates: start: 20201014
  5. TEDUGLUTIDE [Suspect]
     Active Substance: TEDUGLUTIDE
     Dosage: 0.135 MILLILITER, QD
     Route: 058
     Dates: start: 202010
  6. TEDUGLUTIDE [Suspect]
     Active Substance: TEDUGLUTIDE
     Dosage: 0.135 MILLILITER, QD
     Route: 058
     Dates: start: 202010
  7. TEDUGLUTIDE [Suspect]
     Active Substance: TEDUGLUTIDE
     Dosage: 0.135 MILLILITER, QD
     Route: 058
     Dates: start: 202010
  8. TEDUGLUTIDE [Suspect]
     Active Substance: TEDUGLUTIDE
     Dosage: 0.135 MILLILITER, QD
     Route: 058
     Dates: start: 202010
  9. TEDUGLUTIDE [Suspect]
     Active Substance: TEDUGLUTIDE
     Dosage: 1.355 MILLIGRAM, QD
     Route: 058
     Dates: start: 20201022
  10. TEDUGLUTIDE [Suspect]
     Active Substance: TEDUGLUTIDE
     Dosage: 1.355 MILLIGRAM, QD
     Route: 058
     Dates: start: 20201022
  11. TEDUGLUTIDE [Suspect]
     Active Substance: TEDUGLUTIDE
     Dosage: 1.355 MILLIGRAM, QD
     Route: 058
     Dates: start: 20201022
  12. TEDUGLUTIDE [Suspect]
     Active Substance: TEDUGLUTIDE
     Dosage: 1.355 MILLIGRAM, QD
     Route: 058
     Dates: start: 20201022
  13. TEDUGLUTIDE [Suspect]
     Active Substance: TEDUGLUTIDE
     Dosage: 1.4 MILLIGRAM, QD
     Route: 058
     Dates: start: 202012
  14. TEDUGLUTIDE [Suspect]
     Active Substance: TEDUGLUTIDE
     Dosage: 1.4 MILLIGRAM, QD
     Route: 058
     Dates: start: 202012
  15. TEDUGLUTIDE [Suspect]
     Active Substance: TEDUGLUTIDE
     Dosage: 1.4 MILLIGRAM, QD
     Route: 058
     Dates: start: 202012
  16. TEDUGLUTIDE [Suspect]
     Active Substance: TEDUGLUTIDE
     Dosage: 1.4 MILLIGRAM, QD
     Route: 058
     Dates: start: 202012
  17. TEDUGLUTIDE [Suspect]
     Active Substance: TEDUGLUTIDE
     Dosage: 1.355 MILLIGRAM, QD
     Route: 058
     Dates: start: 202010
  18. TEDUGLUTIDE [Suspect]
     Active Substance: TEDUGLUTIDE
     Dosage: 1.355 MILLIGRAM, QD
     Route: 058
     Dates: start: 202010
  19. TEDUGLUTIDE [Suspect]
     Active Substance: TEDUGLUTIDE
     Dosage: 1.355 MILLIGRAM, QD
     Route: 058
     Dates: start: 202010
  20. TEDUGLUTIDE [Suspect]
     Active Substance: TEDUGLUTIDE
     Dosage: 1.355 MILLIGRAM, QD
     Route: 058
     Dates: start: 202010

REACTIONS (10)
  - Foreign body in gastrointestinal tract [Recovered/Resolved]
  - Fungal infection [Recovered/Resolved]
  - Device related infection [Unknown]
  - Viral infection [Recovered/Resolved]
  - Vascular device infection [Unknown]
  - Bacterial infection [Recovered/Resolved]
  - Hospitalisation [Unknown]
  - Gastrointestinal disorder [Recovering/Resolving]
  - Injection site mass [Recovered/Resolved]
  - Product dose omission issue [Recovered/Resolved]

NARRATIVE: CASE EVENT DATE: 20211001
